FAERS Safety Report 5031359-2 (Version None)
Quarter: 2006Q2

REPORT INFORMATION
  Report Type: 
  Country: None (occurrence: None)
  Receive Date: 20060621
  Receipt Date: 20060612
  Transmission Date: 20061013
  Serious: Yes (Other)
  Sender: FDA-Public Use
  Company Number: 2006AC01111

PATIENT
  Age: 6 Year
  Sex: Male
  Weight: 23.8 kg

DRUGS (2)
  1. BUPIVACAINE [Suspect]
     Indication: PROCEDURAL PAIN
     Route: 008
  2. BUPIVACAINE [Suspect]
     Route: 008

REACTIONS (2)
  - HYPOAESTHESIA [None]
  - PRIAPISM [None]
